FAERS Safety Report 4959840-2 (Version None)
Quarter: 2006Q1

REPORT INFORMATION
  Report Type: 
  Country: None (occurrence: None)
  Receive Date: 20060331
  Receipt Date: 20050825
  Transmission Date: 20060701
  Serious: Yes (Hospitalization, Other)
  Sender: FDA-Public Use
  Company Number: US-MERCK-0508USA04242

PATIENT
  Age: 67 Year
  Sex: Female
  Weight: 90 kg

DRUGS (2)
  1. VIOXX [Suspect]
     Indication: ARTHRITIS
     Route: 048
     Dates: start: 20020729, end: 20040901
  2. VIOXX [Suspect]
     Route: 048
     Dates: start: 20010501, end: 20010702

REACTIONS (29)
  - ANGINA UNSTABLE [None]
  - ANGIOPATHY [None]
  - ARTERIAL OCCLUSIVE DISEASE [None]
  - ARTERIAL STENOSIS [None]
  - BACK PAIN [None]
  - BRONCHITIS ACUTE [None]
  - CARDIAC DISORDER [None]
  - CORONARY ARTERY DISEASE [None]
  - DILATATION ATRIAL [None]
  - DYSPHASIA [None]
  - DYSPNOEA [None]
  - HAEMORRHAGE [None]
  - HEART VALVE INSUFFICIENCY [None]
  - HYPERCHOLESTEROLAEMIA [None]
  - HYPERLIPIDAEMIA [None]
  - HYPERTENSION [None]
  - HYPOAESTHESIA [None]
  - INCONTINENCE [None]
  - INTERMITTENT CLAUDICATION [None]
  - INTESTINAL FUNCTIONAL DISORDER [None]
  - MITRAL VALVE INCOMPETENCE [None]
  - MITRAL VALVE PROLAPSE [None]
  - MUSCLE SPASMS [None]
  - MYOCARDIAL ISCHAEMIA [None]
  - PERIPHERAL VASCULAR DISORDER [None]
  - SKELETAL INJURY [None]
  - TRICUSPID VALVE INCOMPETENCE [None]
  - VENTRICULAR DYSFUNCTION [None]
  - VENTRICULAR HYPERTROPHY [None]
